FAERS Safety Report 9170676 (Version 2)
Quarter: 2013Q2

REPORT INFORMATION
  Report Type: Report from Study
  Country: DE (occurrence: DE)
  Receive Date: 20130319
  Receipt Date: 20130403
  Transmission Date: 20140414
  Serious: Yes (Death, Other)
  Sender: FDA-Public Use
  Company Number: DE-SANOFI-AVENTIS-2013SA026980

PATIENT
  Age: 74 Year
  Sex: Female
  Weight: 85 kg

DRUGS (9)
  1. MULTAQ [Suspect]
     Indication: ATRIAL FIBRILLATION
     Route: 048
     Dates: start: 20120401, end: 20121023
  2. BETA BLOCKING AGENTS [Concomitant]
     Dates: start: 2010
  3. SIMVASTATIN [Concomitant]
  4. EXFORGE [Concomitant]
  5. VIT K ANTAGONISTS [Concomitant]
     Dates: start: 2011
  6. MARCUMAR [Concomitant]
     Dosage: ACC. TO INR (AIM: 2.5 - 3)
  7. METOPROLOL [Concomitant]
  8. SIMVASTATIN [Concomitant]
  9. TORASEMIDE [Concomitant]

REACTIONS (2)
  - Sudden death [Fatal]
  - Atrial fibrillation [Unknown]
